FAERS Safety Report 26217217 (Version 1)
Quarter: 2025Q4

REPORT INFORMATION
  Report Type: Other
  Country: EU (occurrence: EU)
  Receive Date: 20251231
  Receipt Date: 20251231
  Transmission Date: 20260117
  Serious: Yes (Other)
  Sender: ZYDUS PHARM
  Company Number: None

PATIENT

DRUGS (9)
  1. GABAPENTIN [Interacting]
     Active Substance: GABAPENTIN
     Indication: Diabetic neuropathy
     Dosage: 600 MILLIGRAM, QD
     Route: 048
  2. LAMOTRIGINE [Interacting]
     Active Substance: LAMOTRIGINE
     Indication: Bipolar disorder
     Dosage: 75 MILLIGRAM, QD
     Route: 048
     Dates: start: 20251019
  3. ZUCLOPENTHIXOL ACETATE [Interacting]
     Active Substance: ZUCLOPENTHIXOL ACETATE
     Indication: Bipolar disorder
     Dosage: 100 MILLIGRAM, QD
     Route: 048
  4. DIAZEPAM [Interacting]
     Active Substance: DIAZEPAM
     Indication: Bipolar disorder
     Dosage: 20 MILLIGRAM, QD
     Route: 048
  5. QUETIAPINE [Interacting]
     Active Substance: QUETIAPINE
     Indication: Bipolar disorder
     Dosage: 400 MILLIGRAM, QD
     Route: 048
  6. TROPATEPINE HYDROCHLORIDE [Interacting]
     Active Substance: TROPATEPINE HYDROCHLORIDE
     Indication: Wrong patient
     Dosage: 1 DOSAGE FORM, QD
     Route: 048
     Dates: start: 20251024, end: 20251105
  7. OXAZEPAM [Interacting]
     Active Substance: OXAZEPAM
     Indication: Wrong patient
     Dosage: 3 DOSAGE FORM, QD
     Route: 048
     Dates: start: 20251024, end: 20251105
  8. BRINTELLIX [Interacting]
     Active Substance: VORTIOXETINE HYDROBROMIDE
     Indication: Wrong patient
     Dosage: 1 DOSAGE FORM, QD
     Route: 048
     Dates: start: 20251024, end: 20251105
  9. LOXAPINE SUCCINATE [Interacting]
     Active Substance: LOXAPINE SUCCINATE
     Indication: Wrong patient
     Dosage: 100 MILLIGRAM, QD
     Route: 048
     Dates: start: 20251024, end: 20251105

REACTIONS (3)
  - Drug interaction [Recovered/Resolved]
  - Somnolence [Recovered/Resolved]
  - Tremor [Recovered/Resolved]

NARRATIVE: CASE EVENT DATE: 20251024
